FAERS Safety Report 23159082 (Version 3)
Quarter: 2023Q4

REPORT INFORMATION
  Report Type: Spontaneous
  Country: US (occurrence: US)
  Receive Date: 20231108
  Receipt Date: 20231120
  Transmission Date: 20240110
  Serious: No
  Sender: FDA-Public Use
  Company Number: US-AMGEN-USASP2023196661

PATIENT
  Age: 68 Year
  Sex: Female

DRUGS (1)
  1. AIMOVIG [Suspect]
     Active Substance: ERENUMAB-AOOE
     Indication: Migraine
     Dosage: 70 MILLIGRAM TWICE A MONTH
     Route: 058
     Dates: start: 2023

REACTIONS (4)
  - Off label use [Unknown]
  - Device difficult to use [Unknown]
  - Drug dose omission by device [Unknown]
  - Migraine [Unknown]

NARRATIVE: CASE EVENT DATE: 20230101
